FAERS Safety Report 9257203 (Version 1)
Quarter: 2013Q2

REPORT INFORMATION
  Report Type: Spontaneous
  Country: FR (occurrence: FR)
  Receive Date: 20130426
  Receipt Date: 20130426
  Transmission Date: 20140414
  Serious: Yes (Hospitalization)
  Sender: FDA-Public Use
  Company Number: PHHY2013FR041243

PATIENT
  Age: 52 Year
  Sex: Male

DRUGS (1)
  1. ONBREZ [Suspect]

REACTIONS (1)
  - Laryngeal cancer [Not Recovered/Not Resolved]
